FAERS Safety Report 4734737-1 (Version None)
Quarter: 2005Q3

REPORT INFORMATION
  Report Type: 
  Country: None (occurrence: None)
  Receive Date: 20050804
  Receipt Date: 20050802
  Transmission Date: 20060218
  Serious: Yes (Other)
  Sender: FDA-Public Use
  Company Number: US-GLAXOSMITHKLINE-A0568644A

PATIENT
  Age: 51 Year
  Sex: Male

DRUGS (13)
  1. PAROXETINE HCL [Suspect]
     Indication: DEPRESSION
     Dosage: 40MG PER DAY
     Route: 048
     Dates: start: 20050727
  2. FUROSEMIDE [Concomitant]
  3. AVALIDE [Concomitant]
  4. ALLEGRA [Concomitant]
  5. COREG [Concomitant]
  6. ACIPHEX [Concomitant]
  7. SPIRONOLACTONE [Concomitant]
  8. ISOSORBIDE [Concomitant]
  9. ADVAIR DISKUS 100/50 [Concomitant]
  10. OXYCONTIN [Concomitant]
  11. OXYCODONE [Concomitant]
  12. M.V.I. [Concomitant]
  13. LACTULOSE [Concomitant]

REACTIONS (2)
  - DEMENTIA [None]
  - DYSPHONIA [None]
